FAERS Safety Report 10314564 (Version 1)
Quarter: 2014Q3

REPORT INFORMATION
  Report Type: Spontaneous
  Country: US (occurrence: US)
  Receive Date: 20140718
  Receipt Date: 20140718
  Transmission Date: 20150326
  Serious: No
  Sender: FDA-Public Use
  Company Number: US-ASTRAZENECA-2014SE49839

PATIENT
  Age: 76 Year
  Sex: Female
  Weight: 90.7 kg

DRUGS (4)
  1. BP MEDICATION [Concomitant]
     Indication: BLOOD PRESSURE ABNORMAL
     Dosage: NR DAILY
  2. SYNTHROID (GEN) [Concomitant]
     Dosage: NR DAILY
  3. PULMICORT FLEXHALER [Suspect]
     Active Substance: BUDESONIDE
     Indication: CHRONIC OBSTRUCTIVE PULMONARY DISEASE
     Dosage: 180MCG, 2 PUFFS BID
     Route: 055
  4. ALBUTEROL. [Concomitant]
     Active Substance: ALBUTEROL
     Dosage: NR DAILY

REACTIONS (3)
  - Circumstance or information capable of leading to medication error [Recovered/Resolved]
  - Dyspnoea [Recovered/Resolved]
  - Off label use [Not Recovered/Not Resolved]
